FAERS Safety Report 10041973 (Version 1)
Quarter: 2014Q1

REPORT INFORMATION
  Report Type: Spontaneous
  Country: FR (occurrence: FR)
  Receive Date: 20140327
  Receipt Date: 20140327
  Transmission Date: 20141002
  Serious: Yes (Hospitalization)
  Sender: FDA-Public Use
  Company Number: FR-PFIZER INC-2014082705

PATIENT
  Age: 49 Year
  Sex: Male

DRUGS (5)
  1. ZYVOXID [Suspect]
     Indication: ACUTE RESPIRATORY DISTRESS SYNDROME
     Dosage: UNK
     Route: 042
     Dates: start: 20140220, end: 20140227
  2. TAZOBACTAM [Suspect]
     Indication: ACUTE RESPIRATORY DISTRESS SYNDROME
     Dosage: UNK
     Route: 042
     Dates: start: 20140220, end: 20140227
  3. CIFLOX [Suspect]
     Indication: ACUTE RESPIRATORY DISTRESS SYNDROME
     Dosage: UNK
     Route: 042
     Dates: start: 20140220, end: 20140225
  4. ARGANOVA [Concomitant]
     Indication: HEPARIN-INDUCED THROMBOCYTOPENIA
     Dosage: 260 MG (RATE NOT SPECIFIED)
     Route: 042
     Dates: start: 20140220
  5. HEPARIN [Concomitant]
     Dosage: UNK
     Dates: end: 20140219

REACTIONS (1)
  - Hepatitis cholestatic [Recovering/Resolving]
